FAERS Safety Report 7529182-X (Version None)
Quarter: 2011Q2

REPORT INFORMATION
  Report Type: 
  Country: None (occurrence: None)
  Receive Date: 20110607
  Receipt Date: 20110530
  Transmission Date: 20111010
  Serious: Yes (Hospitalization)
  Sender: FDA-Public Use
  Company Number: TH-SANOFI-AVENTIS-2011SA034092

PATIENT
  Age: 44 Year
  Sex: Female
  Weight: 45 kg

DRUGS (6)
  1. ONDANSETRON [Concomitant]
     Route: 065
  2. DOCETAXEL [Suspect]
     Indication: BREAST CANCER
     Route: 041
     Dates: start: 20100513, end: 20100513
  3. CYCLOPHOSPHAMIDE [Suspect]
     Indication: BREAST CANCER
     Route: 042
     Dates: start: 20100503, end: 20100503
  4. CYCLOPHOSPHAMIDE [Suspect]
     Route: 042
     Dates: start: 20100719, end: 20100719
  5. DEXAMETHASONE [Concomitant]
     Route: 065
  6. DOCETAXEL [Suspect]
     Route: 041
     Dates: start: 20100719, end: 20100719

REACTIONS (3)
  - HYPOKALAEMIA [None]
  - DIARRHOEA [None]
  - NEUTROPENIA [None]
